FAERS Safety Report 23521451 (Version 1)
Quarter: 2024Q1

REPORT INFORMATION
  Report Type: 
  Country: None (occurrence: None)
  Receive Date: 20240214
  Receipt Date: 20240214
  Transmission Date: 20240410
  Serious: No
  Sender: FDA-Public Use
  Company Number: US-ROCHE-3476599

PATIENT
  Weight: 63.9 kg

DRUGS (11)
  1. FARICIMAB [Suspect]
     Active Substance: FARICIMAB
     Dates: start: 20230825, end: 20230825
  2. FARICIMAB [Suspect]
     Active Substance: FARICIMAB
     Dates: start: 20231031, end: 20231031
  3. FARICIMAB [Suspect]
     Active Substance: FARICIMAB
     Dates: start: 20230928, end: 20230928
  4. FARICIMAB [Suspect]
     Active Substance: FARICIMAB
     Dates: start: 20231215, end: 20231215
  5. ARIPIPRAZOLE [Concomitant]
     Active Substance: ARIPIPRAZOLE
     Dates: start: 2022
  6. GABAPENTIN [Concomitant]
     Active Substance: GABAPENTIN
     Dates: start: 20230602
  7. NORTRIPTYLINE HYDROCHLORIDE [Concomitant]
     Active Substance: NORTRIPTYLINE HYDROCHLORIDE
     Dates: start: 20230716
  8. LEVEMIR [Concomitant]
     Active Substance: INSULIN DETEMIR
     Dates: start: 2022
  9. HUMALOG [Concomitant]
     Active Substance: INSULIN LISPRO
     Dates: start: 20230511
  10. LOSARTAN [Concomitant]
     Active Substance: LOSARTAN
     Dates: start: 20230511
  11. NORETHINDRONE [Concomitant]
     Active Substance: NORETHINDRONE

REACTIONS (3)
  - Uveitis [None]
  - Ocular hypertension [None]
  - Ocular vasculitis [None]

NARRATIVE: CASE EVENT DATE: 20231031
